FAERS Safety Report 20358129 (Version 1)
Quarter: 2022Q1

REPORT INFORMATION
  Report Type: Spontaneous
  Country: MX (occurrence: US)
  Receive Date: 20220120
  Receipt Date: 20220120
  Transmission Date: 20220423
  Serious: No
  Sender: FDA-Public Use
  Company Number: MX-NOVOPROD-860413

PATIENT
  Age: 49 Year
  Sex: Female
  Weight: 60 kg

DRUGS (6)
  1. OZEMPIC [Suspect]
     Active Substance: SEMAGLUTIDE
     Indication: Blood glucose abnormal
     Dosage: 0.5 MG, QW
     Route: 058
  2. OZEMPIC [Suspect]
     Active Substance: SEMAGLUTIDE
     Dosage: 0.75 MG, QW
     Route: 058
  3. OZEMPIC [Suspect]
     Active Substance: SEMAGLUTIDE
     Dosage: 1 MG, QW
     Route: 058
     Dates: end: 20211001
  4. OZEMPIC [Suspect]
     Active Substance: SEMAGLUTIDE
     Indication: Weight control
     Dosage: 0.25 MG, QW
     Route: 058
     Dates: start: 202105
  5. DAPAGLIFLOZIN [Concomitant]
     Active Substance: DAPAGLIFLOZIN
     Indication: Product used for unknown indication
     Dosage: UNK
     Route: 065
  6. METFORMIN [Concomitant]
     Active Substance: METFORMIN HYDROCHLORIDE
     Indication: Product used for unknown indication
     Dosage: UNK
     Route: 065

REACTIONS (8)
  - Feeling abnormal [Unknown]
  - Muscle spasms [Unknown]
  - Food aversion [Unknown]
  - Vomiting [Unknown]
  - Nausea [Unknown]
  - Expired product administered [Recovered/Resolved]
  - Drug ineffective [Unknown]
  - Off label use [Recovered/Resolved]

NARRATIVE: CASE EVENT DATE: 20210501
